FAERS Safety Report 4727115-2 (Version None)
Quarter: 2005Q3

REPORT INFORMATION
  Report Type: 
  Country: None (occurrence: None)
  Receive Date: 20050726
  Receipt Date: 20050711
  Transmission Date: 20060218
  Serious: Yes (Other)
  Sender: FDA-Public Use
  Company Number: 1863

PATIENT
  Age: 30 Year
  Sex: Female

DRUGS (5)
  1. ONTAK [Suspect]
     Indication: MYCOSIS FUNGOIDES
     Dosage: 15 UG/KG/D QD IV
     Route: 042
     Dates: start: 20041201, end: 20050601
  2. TARGRETIN [Suspect]
     Indication: MYCOSIS FUNGOIDES
     Dosage: 525 MG QD PO
     Route: 048
     Dates: end: 20040101
  3. TARGRETIN [Suspect]
     Indication: MYCOSIS FUNGOIDES
     Dosage: 525 MG QD PO
     Route: 048
     Dates: start: 20050401, end: 20050601
  4. TARGRETIN [Suspect]
     Indication: MYCOSIS FUNGOIDES
     Dosage: 525 MG QD PO
     Route: 048
     Dates: start: 20050101
  5. VALACYCLOVIR HCL [Concomitant]

REACTIONS (4)
  - ABASIA [None]
  - ASEPTIC NECROSIS BONE [None]
  - CONDITION AGGRAVATED [None]
  - MYCOSIS FUNGOIDES [None]
